FAERS Safety Report 14183736 (Version 8)
Quarter: 2018Q1

REPORT INFORMATION
  Report Type: Report from Study
  Country: IL (occurrence: IL)
  Receive Date: 20171113
  Receipt Date: 20180201
  Transmission Date: 20180508
  Serious: Yes (Other)
  Sender: FDA-Public Use
  Company Number: PHHY2017IL155216

PATIENT
  Age: 62 Year
  Sex: Female

DRUGS (3)
  1. AFINITOR [Suspect]
     Active Substance: EVEROLIMUS
     Indication: BREAST CANCER
     Dosage: 10 MG, QD
     Route: 048
     Dates: start: 20171009, end: 20171109
  2. AROMASIN [Concomitant]
     Active Substance: EXEMESTANE
     Indication: BREAST CANCER
     Route: 065
  3. AFINITOR [Suspect]
     Active Substance: EVEROLIMUS
     Dosage: 5 MG, QD
     Route: 048
     Dates: start: 20171210, end: 20171229

REACTIONS (18)
  - Depressed mood [Not Recovered/Not Resolved]
  - Decreased appetite [Not Recovered/Not Resolved]
  - Dizziness [Recovering/Resolving]
  - Stomatitis [Not Recovered/Not Resolved]
  - Neutrophil count decreased [Unknown]
  - Pyrexia [Not Recovered/Not Resolved]
  - Ascites [Unknown]
  - Lip swelling [Recovering/Resolving]
  - White blood cell count decreased [Unknown]
  - Asthenia [Recovering/Resolving]
  - Alanine aminotransferase increased [Not Recovered/Not Resolved]
  - Gingival swelling [Recovering/Resolving]
  - Weight decreased [Unknown]
  - Haemoglobin decreased [Unknown]
  - Aspartate aminotransferase increased [Not Recovered/Not Resolved]
  - Blood glucose increased [Recovering/Resolving]
  - Blood lactate dehydrogenase increased [Unknown]
  - Oral pain [Recovered/Resolved]

NARRATIVE: CASE EVENT DATE: 20171023
